FAERS Safety Report 20990879 (Version 1)
Quarter: 2022Q2

REPORT INFORMATION
  Report Type: Spontaneous
  Country: US (occurrence: US)
  Receive Date: 20220622
  Receipt Date: 20220622
  Transmission Date: 20220721
  Serious: Yes (Hospitalization, Other)
  Sender: FDA-Public Use
  Company Number: US-LUPIN PHARMACEUTICALS INC.-2022-08882

PATIENT
  Age: 24 Year
  Sex: Female

DRUGS (5)
  1. LAMOTRIGINE [Suspect]
     Active Substance: LAMOTRIGINE
     Indication: Affective disorder
     Dosage: UNK
     Route: 065
  2. CLOBETASOL [Suspect]
     Active Substance: CLOBETASOL
     Indication: Stevens-Johnson syndrome
     Dosage: UNK UNK, QD, (CREAM)
     Route: 061
  3. CLOBETASOL [Suspect]
     Active Substance: CLOBETASOL
     Dosage: UNK UNK, QD, (OINTMENT)
     Route: 061
  4. FLUCONAZOLE [Concomitant]
     Active Substance: FLUCONAZOLE
     Indication: Fungal infection
     Dosage: UNK
     Route: 042
  5. NYSTATIN [Concomitant]
     Active Substance: NYSTATIN
     Indication: Vulvovaginal mycotic infection
     Dosage: UNK
     Route: 061

REACTIONS (4)
  - Stevens-Johnson syndrome [Recovering/Resolving]
  - Vulvovaginal injury [Recovering/Resolving]
  - Drug ineffective for unapproved indication [Unknown]
  - Off label use [Unknown]
